FAERS Safety Report 18925447 (Version 1)
Quarter: 2021Q1

REPORT INFORMATION
  Report Type: Other
  Country: US (occurrence: US)
  Receive Date: 20210222
  Receipt Date: 20210222
  Transmission Date: 20210420
  Serious: Yes (Hospitalization, Other)
  Sender: FDA-Public Use
  Company Number: US-APRECIA PHARMACEUTICALS-APRE20210028

PATIENT
  Age: 2 Year
  Sex: Female

DRUGS (3)
  1. LEVETIRACETAM. [Suspect]
     Active Substance: LEVETIRACETAM
     Indication: EPILEPSY
     Dosage: 27 MG/KG/DAY
     Route: 065
  2. LEVETIRACETAM. [Suspect]
     Active Substance: LEVETIRACETAM
     Dosage: 100 MG/KG/DAY
     Route: 065
  3. LEVETIRACETAM. [Suspect]
     Active Substance: LEVETIRACETAM
     Dosage: 50 MG/KG/DAY
     Route: 065

REACTIONS (7)
  - Status epilepticus [Recovered/Resolved]
  - Partial seizures [Recovered/Resolved]
  - Generalised tonic-clonic seizure [Recovered/Resolved]
  - Condition aggravated [Recovered/Resolved]
  - Hypotonia [Recovered/Resolved]
  - Seizure cluster [Recovered/Resolved]
  - Off label use [None]
